FAERS Safety Report 9029453 (Version 1)
Quarter: 2013Q1

REPORT INFORMATION
  Report Type: Spontaneous
  Country: US (occurrence: US)
  Receive Date: 20130125
  Receipt Date: 20130125
  Transmission Date: 20140127
  Serious: Yes (Other)
  Sender: FDA-Public Use
  Company Number: US-SANOFI-AVENTIS-2013SA003681

PATIENT
  Age: 45 Year
  Sex: Female

DRUGS (4)
  1. ALLEGRA [Suspect]
     Indication: HYPERSENSITIVITY
     Route: 048
     Dates: start: 201301
  2. FLONASE [Suspect]
     Indication: HYPERSENSITIVITY
     Route: 065
  3. ALBUTEROL [Concomitant]
  4. ANTIHYPERTENSIVES [Concomitant]

REACTIONS (3)
  - Influenza [Not Recovered/Not Resolved]
  - Pulmonary congestion [Not Recovered/Not Resolved]
  - Cough [Not Recovered/Not Resolved]
